FAERS Safety Report 8016067-8 (Version None)
Quarter: 2011Q4

REPORT INFORMATION
  Report Type: 
  Country: None (occurrence: None)
  Receive Date: 20111230
  Receipt Date: 20111226
  Transmission Date: 20120403
  Serious: Yes (Other)
  Sender: FDA-Public Use
  Company Number: FR-ABBOTT-11P-056-0886800-00

PATIENT
  Sex: Female

DRUGS (6)
  1. NORVIR [Suspect]
     Dates: start: 20110329
  2. TELZIR [Suspect]
     Dates: start: 20110329
  3. NORVIR [Suspect]
     Indication: HIV INFECTION
     Route: 048
     Dates: start: 20060201, end: 20110301
  4. TRUVADA [Suspect]
     Dates: start: 20110329
  5. TRUVADA [Suspect]
     Indication: HIV INFECTION
     Dosage: 200MG/245 MG
     Route: 048
     Dates: start: 20060201, end: 20110301
  6. TELZIR [Suspect]
     Indication: HIV INFECTION
     Route: 048
     Dates: start: 20060201, end: 20110301

REACTIONS (3)
  - POLYNEUROPATHY [None]
  - DYSAESTHESIA [None]
  - HYPOAESTHESIA [None]
